FAERS Safety Report 4957073-7 (Version None)
Quarter: 2006Q1

REPORT INFORMATION
  Report Type: 
  Country: None (occurrence: None)
  Receive Date: 20060323
  Receipt Date: 20060310
  Transmission Date: 20060701
  Serious: Yes (Death)
  Sender: FDA-Public Use
  Company Number: 2006022316

PATIENT
  Sex: Male

DRUGS (6)
  1. GEODON [Suspect]
     Indication: BIPOLAR DISORDER
     Dosage: 120 MG (1 D) ORAL
     Route: 048
     Dates: start: 20050913, end: 20060101
  2. VICODIN [Concomitant]
  3. TEMAZEPAM [Concomitant]
  4. SYNTHROID [Concomitant]
  5. PROZAC [Concomitant]
  6. VALIUM [Concomitant]

REACTIONS (3)
  - COLD SWEAT [None]
  - COMPLETED SUICIDE [None]
  - MALAISE [None]
